FAERS Safety Report 9063655 (Version 1)
Quarter: 2013Q1

REPORT INFORMATION
  Report Type: Report from Study
  Country: US (occurrence: US)
  Receive Date: 20130131
  Receipt Date: 20130131
  Transmission Date: 20140127
  Serious: No
  Sender: FDA-Public Use
  Company Number: US-ABBOTT-12P-163-1013387-00

PATIENT
  Age: 45 Year
  Sex: Female
  Weight: 113.5 kg

DRUGS (6)
  1. HUMIRA [Suspect]
     Indication: PSORIASIS
     Dates: start: 200904, end: 201112
  2. TACLONEX [Concomitant]
     Indication: PSORIASIS
  3. LANTUS [Concomitant]
     Indication: DIABETES MELLITUS
  4. NOVOLOG [Concomitant]
     Indication: DIABETES MELLITUS
  5. METFORMIN [Concomitant]
     Indication: DIABETES MELLITUS
  6. VICTOZA [Concomitant]
     Indication: DIABETES MELLITUS

REACTIONS (3)
  - Renal function test abnormal [Recovered/Resolved]
  - Nasopharyngitis [Not Recovered/Not Resolved]
  - Psoriasis [Not Recovered/Not Resolved]
